FAERS Safety Report 14826696 (Version 1)
Quarter: 2018Q2

REPORT INFORMATION
  Report Type: Spontaneous
  Country: US (occurrence: US)
  Receive Date: 20180430
  Receipt Date: 20180430
  Transmission Date: 20180711
  Serious: Yes (Hospitalization)
  Sender: FDA-Public Use
  Company Number: US-LANTHEUS-LMI-2018-00169

PATIENT
  Age: 66 Year
  Sex: Male
  Weight: 118 kg

DRUGS (1)
  1. DEFINITY [Suspect]
     Active Substance: PERFLUTREN
     Indication: ECHOCARDIOGRAM
     Dosage: 1.5 ML (1.3 ML DEFINITY PREPARED IN 8.7 ML NS)
     Route: 040
     Dates: start: 20180413, end: 20180413

REACTIONS (16)
  - Rectal haemorrhage [Unknown]
  - Dizziness [Unknown]
  - Peripheral artery aneurysm [Unknown]
  - White blood cell count increased [Unknown]
  - Atrial fibrillation [Unknown]
  - Mean cell volume abnormal [Unknown]
  - Abdominal pain lower [Unknown]
  - Colitis ischaemic [Unknown]
  - Pain [Unknown]
  - Bacterial colitis [Unknown]
  - Blood glucose increased [Unknown]
  - Blood creatine increased [Unknown]
  - Dyspnoea [Unknown]
  - Nausea [Unknown]
  - Atelectasis [Unknown]
  - Vasospasm [Unknown]

NARRATIVE: CASE EVENT DATE: 20180413
